FAERS Safety Report 13132023 (Version 15)
Quarter: 2019Q1

REPORT INFORMATION
  Report Type: Spontaneous
  Country: US (occurrence: US)
  Receive Date: 20170119
  Receipt Date: 20190208
  Transmission Date: 20190417
  Serious: Yes (Death, Hospitalization, Other)
  Sender: FDA-Public Use
  Company Number: US-ACTELION-A-NJ2017-148446

PATIENT
  Age: 45 Year
  Sex: Female

DRUGS (35)
  1. OPSUMIT [Suspect]
     Active Substance: MACITENTAN
     Indication: PULMONARY ARTERIAL HYPERTENSION
     Dosage: 10 MG, QD
     Route: 048
     Dates: start: 20160326, end: 20181003
  2. PROVENTIL [Concomitant]
     Active Substance: ALBUTEROL
     Indication: DYSPNOEA
  3. REGULAR INSULIN NOVO NORDISK [Concomitant]
     Active Substance: INSULIN HUMAN
     Dosage: 8 UNK, QID
  4. ATORVASTATIN [Concomitant]
     Active Substance: ATORVASTATIN
  5. PAROXETINE. [Concomitant]
     Active Substance: PAROXETINE
  6. PROVENTIL [Concomitant]
     Active Substance: ALBUTEROL
     Indication: WHEEZING
     Dosage: 2.5 MG, Q4HRS PRN
  7. NEURONTIN [Concomitant]
     Active Substance: GABAPENTIN
     Indication: NEURALGIA
     Dosage: 600 MG, TID
     Route: 048
  8. FLUTICASONE W/SALMETEROL [Concomitant]
     Active Substance: FLUTICASONE PROPIONATE\SALMETEROL XINAFOATE
     Dosage: UNK, BID
  9. LEVEMIR [Concomitant]
     Active Substance: INSULIN DETEMIR
     Dosage: 25 UNK, QPM
  10. METOPROLOL SUCCINATE. [Concomitant]
     Active Substance: METOPROLOL SUCCINATE
     Dosage: 50 MG, UNK
  11. MIDODRINE [Concomitant]
     Active Substance: MIDODRINE
     Dosage: 10 MG, TID
  12. QUETIAPINE. [Concomitant]
     Active Substance: QUETIAPINE
  13. BUSPIRONE [Concomitant]
     Active Substance: BUSPIRONE HYDROCHLORIDE
     Dosage: 10 MG, AT 8 AM AND NOON
     Route: 048
  14. BUSPIRONE [Concomitant]
     Active Substance: BUSPIRONE HYDROCHLORIDE
     Dosage: 20 MG, QPM
     Route: 048
  15. MAG-OX [Concomitant]
     Active Substance: MAGNESIUM OXIDE
     Dosage: 400 MG, TID
     Route: 048
  16. PROAMATINE [Concomitant]
     Active Substance: MIDODRINE HYDROCHLORIDE
     Dosage: 10 MG, BID
  17. SPIRONOLACTONE. [Concomitant]
     Active Substance: SPIRONOLACTONE
     Dosage: 75 MG, UNK
  18. ALBUTEROL. [Concomitant]
     Active Substance: ALBUTEROL
     Dosage: Q6H, PRN
  19. PROTONIX [Concomitant]
     Active Substance: PANTOPRAZOLE SODIUM
  20. LOVENOX [Suspect]
     Active Substance: ENOXAPARIN SODIUM
     Indication: PRODUCT USED FOR UNKNOWN INDICATION
     Route: 065
  21. ADVAIR HFA [Concomitant]
     Active Substance: FLUTICASONE PROPIONATE\SALMETEROL XINAFOATE
     Dosage: 2 PUFF, BID
  22. ASA [Concomitant]
     Active Substance: ASPIRIN
  23. K-DUR [Concomitant]
     Active Substance: POTASSIUM CHLORIDE
     Dosage: 40 MEQ, BID
     Route: 048
  24. METOLAZONE. [Concomitant]
     Active Substance: METOLAZONE
     Dosage: 5 MG, UNK
  25. APIXABAN [Concomitant]
     Active Substance: APIXABAN
     Dosage: 5 MG, BID
  26. VENTOLIN [Concomitant]
     Active Substance: ALBUTEROL SULFATE
     Dosage: 2 PUFF, Q4HRS PRN
  27. FERREX [Concomitant]
     Active Substance: FERRIC POLYSACCHARIDE COMPLEX
     Dosage: 150 MG, UNK
     Route: 048
  28. KCL [Concomitant]
     Active Substance: POTASSIUM CHLORIDE
     Dosage: 20 MEQ, UNK
  29. COUMADIN [Concomitant]
     Active Substance: WARFARIN SODIUM
  30. ANTIVERT [Concomitant]
     Active Substance: MECLIZINE HYDROCHLORIDE
     Indication: DIZZINESS
     Dosage: 25 MG, TID PRN
     Route: 048
  31. OXYGEN. [Concomitant]
     Active Substance: OXYGEN
     Dosage: 6-8L VIA NC
  32. TORSEMIDE. [Concomitant]
     Active Substance: TORSEMIDE
     Dosage: 80 MG, UNK
  33. ANTIVERT [Concomitant]
     Active Substance: MECLIZINE HYDROCHLORIDE
     Indication: VERTIGO
  34. PRILOSEC [Concomitant]
     Active Substance: OMEPRAZOLE MAGNESIUM
     Dosage: 20 MG, BID
  35. TORSEMIDE. [Concomitant]
     Active Substance: TORSEMIDE
     Dosage: 60 MG, QPM

REACTIONS (27)
  - Drug hypersensitivity [Unknown]
  - Acute kidney injury [Recovered/Resolved]
  - Weight increased [Recovered/Resolved]
  - Dizziness [Unknown]
  - Right ventricular failure [Unknown]
  - Pulmonary veno-occlusive disease [Recovered/Resolved]
  - Hypotension [Recovered/Resolved]
  - Blood potassium decreased [Recovered/Resolved]
  - Palpitations [Unknown]
  - Blood potassium increased [Unknown]
  - Contusion [Unknown]
  - Abdominal distension [Not Recovered/Not Resolved]
  - Acute respiratory failure [Recovered/Resolved]
  - Dyspnoea exertional [Recovered/Resolved]
  - Fall [Unknown]
  - Atrial fibrillation [Recovered/Resolved]
  - Pulmonary hypertension [Recovered/Resolved]
  - Fluid overload [Recovered/Resolved]
  - Cardiac arrest [Fatal]
  - Abdominal pain [Not Recovered/Not Resolved]
  - Blood creatinine increased [Unknown]
  - Fluid retention [Recovered/Resolved]
  - Chest pain [Unknown]
  - Diet noncompliance [Recovered/Resolved]
  - Dyspnoea [Unknown]
  - Left ventricular dysfunction [Recovered/Resolved]
  - Treatment noncompliance [Unknown]

NARRATIVE: CASE EVENT DATE: 20170102
